FAERS Safety Report 16618930 (Version 5)
Quarter: 2023Q1

REPORT INFORMATION
  Report Type: Report from Study
  Country: FR (occurrence: FR)
  Receive Date: 20190723
  Receipt Date: 20230314
  Transmission Date: 20230418
  Serious: Yes (Hospitalization, Other)
  Sender: FDA-Public Use
  Company Number: FR-PFIZER INC-2017527651

PATIENT
  Age: 67 Year
  Sex: Female

DRUGS (26)
  1. BOSULIF [Suspect]
     Active Substance: BOSUTINIB MONOHYDRATE
     Indication: Chronic myeloid leukaemia
     Dosage: 300 MG, DAILY
     Route: 048
     Dates: start: 20170914, end: 20180702
  2. BOSULIF [Suspect]
     Active Substance: BOSUTINIB MONOHYDRATE
     Dosage: 300 MG, DAILY
     Dates: start: 20180816, end: 20190618
  3. OXYCODONE HYDROCHLORIDE [Suspect]
     Active Substance: OXYCODONE HYDROCHLORIDE
     Dosage: UNK
  4. BACTRIM [Concomitant]
     Active Substance: SULFAMETHOXAZOLE\TRIMETHOPRIM
     Indication: Osteitis
     Dosage: 2400 (UNSPECIFIED UNIT AND FREQUENCY)
     Dates: start: 20170821, end: 20171217
  5. RIFAMPIN [Concomitant]
     Active Substance: RIFAMPIN
     Indication: Osteitis
     Dosage: 1200 (UNSPECIFIED UNIT), DAILY
     Dates: start: 20170915, end: 20171217
  6. ACUPAN [Concomitant]
     Active Substance: NEFOPAM HYDROCHLORIDE
     Indication: Pain
     Dosage: 60 (UNSPECIFIED UNIT), DAILY
     Dates: start: 20170928, end: 20171217
  7. OXYCONTIN [Concomitant]
     Active Substance: OXYCODONE HYDROCHLORIDE
     Indication: Pain in extremity
     Dosage: UNK, DAILY
     Dates: start: 201705
  8. OXYCODONE HYDROCHLORIDE [Concomitant]
     Active Substance: OXYCODONE HYDROCHLORIDE
     Indication: Pain in extremity
     Dosage: UNK
     Dates: start: 201705
  9. LEVOTHYROXINE [Concomitant]
     Active Substance: LEVOTHYROXINE
     Indication: Hypothyroidism
     Dosage: 50 (UNSPECIFIED UNIT), DAILY
     Dates: start: 20010619
  10. GLICLAZIDE [Concomitant]
     Active Substance: GLICLAZIDE
     Indication: Diabetes mellitus
     Dosage: 30 (UNSPECIFIED UNIT), DAILY
     Dates: start: 20160204
  11. JANUVIA [Concomitant]
     Active Substance: SITAGLIPTIN PHOSPHATE
     Dosage: 100 (UNSPECIFIED UNIT), DAILY
  12. KARDEGIC [Concomitant]
     Active Substance: ASPIRIN DL-LYSINE
     Dosage: 75 (UNSPECIFIED UNIT), DAILY
  13. ESOMEPRAZOLE [Concomitant]
     Active Substance: ESOMEPRAZOLE
     Indication: Gastrooesophageal reflux disease
     Dosage: UNK, DAILY
  14. NICARDIPINE HYDROCHLORIDE [Concomitant]
     Active Substance: NICARDIPINE HYDROCHLORIDE
     Dosage: 100 (UNSPECIFIED UNIT), DAILY
  15. POLYETHYLENE GLYCOLS [Concomitant]
     Active Substance: POLYETHYLENE GLYCOLS
     Dosage: 30 (UNSPECIFIED UNIT), DAILY
  16. ESCITALOPRAM [Concomitant]
     Active Substance: ESCITALOPRAM OXALATE
     Indication: Anxiety
     Dosage: 30 (UNSPECIFIED UNIT), DAILY
     Dates: end: 20171217
  17. ALPRAZOLAM [Concomitant]
     Active Substance: ALPRAZOLAM
     Indication: Anxiety
     Dosage: 0.25 (UNKNOWN UNIT), DAILY
     Dates: end: 20171229
  18. PREGABALIN [Concomitant]
     Active Substance: PREGABALIN
     Indication: Pain
     Dosage: 75 (UNSPECIFIED UNIT), DAILY
     Dates: start: 20171228
  19. PREGABALIN [Concomitant]
     Active Substance: PREGABALIN
     Dosage: UNK; 50 (UNIT UNSPECIFIED)
     Dates: start: 20171229
  20. FERROUS SULFATE [Concomitant]
     Active Substance: FERROUS SULFATE
     Indication: Anxiety
     Dosage: 160 (UNSPECIFIED UNIT), DAILY
     Dates: end: 20171217
  21. FOLIC ACID [Concomitant]
     Active Substance: FOLIC ACID
     Dosage: 5 (UNSPECIFIED UNIT), DAILY
     Dates: end: 20171217
  22. XARELTO [Concomitant]
     Active Substance: RIVAROXABAN
     Indication: Atrial fibrillation
     Dosage: UNK, DAILY
     Dates: start: 20170725
  23. EPREX [Concomitant]
     Active Substance: ERYTHROPOIETIN
     Dosage: 4000 (UNSPECIFIED UNIT), DAILY
  24. DOLIPRANE [Concomitant]
     Active Substance: ACETAMINOPHEN
     Indication: Pain
     Dosage: 3000 (UNSPECIFIED UNIT), DAILY
  25. AMOXICILLIN [Concomitant]
     Active Substance: AMOXICILLIN
     Indication: Osteitis
     Dosage: 8 (UNSPECIFIED UNIT), DAILY
     Dates: start: 20170727, end: 20171010
  26. AMOXICILLIN [Concomitant]
     Active Substance: AMOXICILLIN
     Dosage: 2 (UNSPECIFIED UNIT), DAILY
     Route: 048
     Dates: start: 20171011, end: 201711

REACTIONS (28)
  - Cardiac failure [Recovered/Resolved]
  - Atrial fibrillation [Recovered/Resolved]
  - Tachyarrhythmia [Recovered/Resolved]
  - Pleural effusion [Recovered/Resolved]
  - Acute respiratory distress syndrome [Recovered/Resolved]
  - Left ventricular failure [Recovered/Resolved]
  - Pleural effusion [Recovered/Resolved]
  - Oedema peripheral [Recovered/Resolved]
  - Limb injury [Recovered/Resolved]
  - Dermatitis [Recovered/Resolved]
  - Escherichia infection [Recovered/Resolved]
  - Staphylococcal infection [Recovered/Resolved]
  - Thrombocytopenia [Recovered/Resolved]
  - Limb injury [Recovered/Resolved]
  - Depression [Not Recovered/Not Resolved]
  - Urinary tract infection [Recovered/Resolved]
  - Klebsiella infection [Recovered/Resolved]
  - Vulvovaginal mycotic infection [Recovered/Resolved]
  - Somnolence [Recovered/Resolved]
  - Blood creatinine increased [Recovered/Resolved]
  - Vomiting [Recovered/Resolved]
  - Nausea [Recovered/Resolved]
  - Pyrexia [Recovered/Resolved]
  - Bacterial infection [Recovered/Resolved]
  - Intertrigo [Recovered/Resolved]
  - Haemorrhoids [Recovered/Resolved]
  - Bronchopulmonary disease [Recovered/Resolved]
  - Dyspnoea [Recovered/Resolved]

NARRATIVE: CASE EVENT DATE: 20171101
